FAERS Safety Report 5094839-X (Version None)
Quarter: 2006Q3

REPORT INFORMATION
  Report Type: 
  Country: None (occurrence: None)
  Receive Date: 20060831
  Receipt Date: 20060831
  Transmission Date: 20061208
  Serious: Yes (Other)
  Sender: FDA-Public Use
  Company Number: None

PATIENT
  Age: 43 Year
  Sex: Female
  Weight: 47.1741 kg

DRUGS (1)
  1. RENOVA [Suspect]
     Indication: EPHELIDES
     Dosage: PEA SIZE AT BEDTIME ONCE TOP
     Route: 061
     Dates: start: 19990515, end: 19991115

REACTIONS (14)
  - AMENORRHOEA [None]
  - CORNEAL DISORDER [None]
  - DRUG INEFFECTIVE [None]
  - EYE DISORDER [None]
  - IMPETIGO [None]
  - LIP DISORDER [None]
  - RASH [None]
  - RASH PAPULAR [None]
  - SKIN DISCOLOURATION [None]
  - SKIN DISORDER [None]
  - SKIN EXFOLIATION [None]
  - SOMATIC DELUSION [None]
  - VISION BLURRED [None]
  - WHITE BLOOD CELL COUNT INCREASED [None]
